FAERS Safety Report 9914111 (Version 2)
Quarter: 2014Q2

REPORT INFORMATION
  Report Type: Spontaneous
  Country: US (occurrence: None)
  Receive Date: 20140218
  Receipt Date: 20140616
  Transmission Date: 20141212
  Serious: Yes (Hospitalization)
  Sender: FDA-Public Use
  Company Number: 2014-US-001565

PATIENT
  Age: 50 Year
  Sex: Male

DRUGS (1)
  1. XYREM [Suspect]
     Indication: SLEEP DISORDER
     Route: 048
     Dates: start: 201312, end: 201312

REACTIONS (5)
  - Hospitalisation [None]
  - Inappropriate schedule of drug administration [None]
  - Off label use [None]
  - Spinal cord injury [None]
  - Nerve injury [None]
